FAERS Safety Report 6895752-5 (Version None)
Quarter: 2010Q3

REPORT INFORMATION
  Report Type: 
  Country: None (occurrence: None)
  Receive Date: 20100802
  Receipt Date: 20100722
  Transmission Date: 20110219
  Serious: Yes (Other)
  Sender: FDA-Public Use
  Company Number: US-JNJFOC-20100707344

PATIENT
  Sex: Female
  Weight: 83.46 kg

DRUGS (4)
  1. REMICADE [Suspect]
     Indication: CROHN'S DISEASE
     Dosage: SECOND INFUSION
     Route: 042
  2. REMICADE [Suspect]
     Dosage: FIRST INFUSION
     Route: 042
  3. PREDNISONE [Suspect]
     Indication: CROHN'S DISEASE
  4. LIALDA [Concomitant]
     Indication: CROHN'S DISEASE

REACTIONS (12)
  - ABASIA [None]
  - FEELING ABNORMAL [None]
  - HYPOKINESIA [None]
  - INFUSION RELATED REACTION [None]
  - MIGRAINE [None]
  - PAIN [None]
  - PAIN IN EXTREMITY [None]
  - RASH GENERALISED [None]
  - RASH MACULAR [None]
  - RESPIRATION ABNORMAL [None]
  - SKIN DISCOLOURATION [None]
  - UPPER EXTREMITY MASS [None]
